FAERS Safety Report 18774671 (Version 1)
Quarter: 2021Q1

REPORT INFORMATION
  Report Type: Spontaneous
  Country: US (occurrence: US)
  Receive Date: 20210122
  Receipt Date: 20210122
  Transmission Date: 20210419
  Serious: No
  Sender: FDA-Public Use
  Company Number: US-BAYER-2021-034630

PATIENT
  Sex: Male

DRUGS (2)
  1. STIVARGA [Suspect]
     Active Substance: REGORAFENIB
     Dosage: 120 MG DAILY
  2. STIVARGA [Suspect]
     Active Substance: REGORAFENIB
     Dosage: 80 MG DAILY

REACTIONS (2)
  - Off label use [None]
  - Confusional state [None]
